FAERS Safety Report 7109318-5 (Version None)
Quarter: 2010Q4

REPORT INFORMATION
  Report Type: 
  Country: None (occurrence: None)
  Receive Date: 20101118
  Receipt Date: 20101109
  Transmission Date: 20110411
  Serious: Yes (Hospitalization)
  Sender: FDA-Public Use
  Company Number: US-BIOGENIDEC-2010BI007780

PATIENT
  Age: 64 Year
  Sex: Male
  Weight: 72 kg

DRUGS (1)
  1. TYSABRI [Suspect]
     Indication: MULTIPLE SCLEROSIS
     Route: 042
     Dates: start: 20080811, end: 20100101

REACTIONS (10)
  - ASTHENIA [None]
  - BONE DISORDER [None]
  - DEPRESSION [None]
  - MUSCULAR WEAKNESS [None]
  - OSTEOMYELITIS [None]
  - URINARY TRACT INFECTION [None]
  - UROSEPSIS [None]
  - WOUND COMPLICATION [None]
  - WOUND HAEMORRHAGE [None]
  - WOUND INFECTION [None]
